FAERS Safety Report 6701213-6 (Version None)
Quarter: 2010Q2

REPORT INFORMATION
  Report Type: 
  Country: None (occurrence: None)
  Receive Date: 20100427
  Receipt Date: 20100409
  Transmission Date: 20101027
  Serious: Yes (Other)
  Sender: FDA-Public Use
  Company Number: 007067

PATIENT
  Age: 26 Year
  Sex: Female

DRUGS (1)
  1. PEGAPTANIB SODIUM (PEGAPTANIB SODIUM) FOR INJECTION [Suspect]
     Dosage: INTRAOCULAR
     Route: 031

REACTIONS (4)
  - RETINAL DETACHMENT [None]
  - RETINAL HAEMORRHAGE [None]
  - VISUAL ACUITY REDUCED [None]
  - VITREOUS HAEMORRHAGE [None]
